FAERS Safety Report 12473800 (Version 2)
Quarter: 2016Q4

REPORT INFORMATION
  Report Type: Spontaneous
  Country: US (occurrence: US)
  Receive Date: 20160616
  Receipt Date: 20161007
  Transmission Date: 20170207
  Serious: Yes (Death, Hospitalization)
  Sender: FDA-Public Use
  Company Number: US-VALIDUS PHARMACEUTICALS LLC-US-2016VAL002058

PATIENT
  Age: 36 Year
  Sex: Female

DRUGS (6)
  1. MILRINONE LACTATE. [Suspect]
     Active Substance: MILRINONE LACTATE
     Indication: HYPOTENSION
     Dosage: UNK
  2. PROTAMINE SULFATE. [Suspect]
     Active Substance: PROTAMINE SULFATE
     Indication: PROCOAGULANT THERAPY
     Dosage: UNK
  3. VASOPRESSIN. [Suspect]
     Active Substance: VASOPRESSIN
     Indication: HYPOTENSION
     Dosage: UNK
  4. EPINEPHRINE. [Suspect]
     Active Substance: EPINEPHRINE
     Indication: HYPOTENSION
     Dosage: UNK
  5. ISOPROTERENOL                      /00006301/ [Suspect]
     Active Substance: ISOPROTERENOL
     Indication: HYPOTENSION
     Dosage: UNK
  6. NOREPINEPHRINE [Suspect]
     Active Substance: NOREPINEPHRINE\NOREPINEPHRINE BITARTRATE
     Indication: HYPOTENSION
     Dosage: UNK

REACTIONS (16)
  - Cardiac failure [Fatal]
  - Pulmonary hypertension [Unknown]
  - Drug ineffective [Unknown]
  - Acidosis [Fatal]
  - Renal failure [Fatal]
  - Circulatory collapse [Fatal]
  - Multiple organ dysfunction syndrome [Fatal]
  - Oliguria [Fatal]
  - Ischaemic hepatitis [Fatal]
  - Respiratory gas exchange disorder [Fatal]
  - Vasoconstriction [Unknown]
  - Hypotension [Unknown]
  - Acute right ventricular failure [Unknown]
  - Echocardiogram abnormal [Unknown]
  - Transplant failure [Unknown]
  - Vasoplegia syndrome [Unknown]
